FAERS Safety Report 11140095 (Version 1)
Quarter: 2015Q2

REPORT INFORMATION
  Report Type: Spontaneous
  Country: US (occurrence: None)
  Receive Date: 20150522
  Receipt Date: 20150522
  Transmission Date: 20150821
  Serious: Yes (Hospitalization, Other)
  Sender: FDA-Public Use
  Company Number: ADR-2015-00997

PATIENT
  Age: 60 Year
  Sex: Male

DRUGS (2)
  1. BACLOFEN. [Suspect]
     Active Substance: BACLOFEN
  2. ANTIBIOTICS [Suspect]
     Active Substance: UNSPECIFIED INGREDIENT

REACTIONS (10)
  - Malaise [None]
  - Asthenia [None]
  - Speech disorder [None]
  - Infection [None]
  - Sepsis [None]
  - Skin abrasion [None]
  - Constipation [None]
  - Wound [None]
  - Choking [None]
  - Dysphagia [None]
